FAERS Safety Report 8539228 (Version 2)
Quarter: 2013Q2

REPORT INFORMATION
  Report Type: Spontaneous
  Country: BR (occurrence: BR)
  Receive Date: 20120501
  Receipt Date: 20130510
  Transmission Date: 20140414
  Serious: Yes (Life-Threatening, Other)
  Sender: FDA-Public Use
  Company Number: BR-AMGEN-BRASP2012027133

PATIENT
  Age: 46 Year
  Sex: Female
  Weight: 55 kg

DRUGS (3)
  1. FILGRASTIM [Suspect]
     Indication: AGRANULOCYTOSIS
     Dosage: 600-900 MUG, QWK
     Route: 058
     Dates: start: 20110602, end: 20120219
  2. PEGASYS [Suspect]
     Indication: HEPATITIS C
     Dosage: 180 MUG, QWK
     Route: 058
     Dates: start: 20110428, end: 20120216
  3. RIBAVIRIN [Concomitant]
     Indication: HEPATITIS C
     Dosage: 1 G, QD
     Dates: start: 20110428, end: 20120216

REACTIONS (4)
  - Diabetic ketoacidosis [Unknown]
  - Diabetes mellitus [Unknown]
  - Agranulocytosis [Unknown]
  - Hypothyroidism [Unknown]
